FAERS Safety Report 9771230 (Version 2)
Quarter: 2014Q2

REPORT INFORMATION
  Report Type: Report from Study
  Country: GB (occurrence: GB)
  Receive Date: 20131218
  Receipt Date: 20140415
  Transmission Date: 20141212
  Serious: No
  Sender: FDA-Public Use
  Company Number: GB-009507513-1312GBR008340

PATIENT
  Age: 37 Year
  Sex: Female
  Weight: 85 kg

DRUGS (3)
  1. BOCEPREVIR [Suspect]
     Indication: CHRONIC HEPATITIS C
     Dosage: 2400MG/DAY
     Route: 048
     Dates: start: 20131014
  2. REBETOL [Suspect]
     Indication: CHRONIC HEPATITIS C
     Dosage: 1200MG/DAY
     Route: 048
     Dates: start: 20130916
  3. PEGASYS [Suspect]
     Indication: CHRONIC HEPATITIS C
     Dosage: 180UG/WEEK
     Route: 058
     Dates: start: 20130916

REACTIONS (2)
  - Migraine [Recovered/Resolved]
  - Poor quality sleep [Not Recovered/Not Resolved]
